FAERS Safety Report 12997505 (Version 1)
Quarter: 2016Q4

REPORT INFORMATION
  Report Type: Spontaneous
  Country: US (occurrence: US)
  Receive Date: 20161202
  Receipt Date: 20161202
  Transmission Date: 20170207
  Serious: Yes (Hospitalization)
  Sender: FDA-Public Use
  Company Number: None

PATIENT
  Age: 71 Year
  Sex: Male
  Weight: 67.2 kg

DRUGS (1)
  1. APIXABAN [Suspect]
     Active Substance: APIXABAN
     Indication: ATRIAL FIBRILLATION
     Route: 048
     Dates: start: 20160523, end: 20160607

REACTIONS (6)
  - Disorientation [None]
  - Ecchymosis [None]
  - Confusional state [None]
  - Pain in extremity [None]
  - Paraesthesia [None]
  - Thrombocytopenia [None]

NARRATIVE: CASE EVENT DATE: 20160607
